FAERS Safety Report 8578099-0 (Version None)
Quarter: 2012Q3

REPORT INFORMATION
  Report Type: 
  Country: None (occurrence: None)
  Receive Date: 20120808
  Receipt Date: 20120803
  Transmission Date: 20120928
  Serious: Yes (Hospitalization, Other)
  Sender: FDA-Public Use
  Company Number: PHEH2006US10891

PATIENT
  Sex: Female
  Weight: 88 kg

DRUGS (42)
  1. FLONASE [Concomitant]
  2. NEXIUM [Concomitant]
  3. VALTREX [Concomitant]
  4. HEPARIN [Concomitant]
  5. DECADRON [Concomitant]
  6. REGLAN [Concomitant]
  7. LORAZEPAM [Concomitant]
  8. EFFEXOR [Concomitant]
     Dosage: 25 MG, UNK
  9. ALBUTEROL [Concomitant]
  10. VIOXX [Concomitant]
     Dosage: 50 MG, UNK
  11. KADIAN ^KNOLL^ [Concomitant]
  12. ZOLPIDEM [Concomitant]
  13. AVASTIN [Concomitant]
  14. CLINDAMYCIN [Concomitant]
  15. COMBIVENT [Concomitant]
  16. MEGACE [Concomitant]
  17. ZOFRAN [Concomitant]
  18. FASLODEX [Concomitant]
  19. CHEMOTHERAPEUTICS NOS [Concomitant]
  20. ACTIVASE [Concomitant]
  21. CELEBREX [Concomitant]
  22. EPIRUBICIN [Concomitant]
  23. VANCOMYCIN [Concomitant]
  24. VALACICLOVIR [Concomitant]
  25. OXYCONTIN [Concomitant]
  26. COUMADIN [Concomitant]
  27. PERIDEX [Concomitant]
  28. TAXOTERE [Concomitant]
  29. FLUCONAZOLE [Concomitant]
  30. METOCLOPRAMIDE [Concomitant]
  31. LUNESTA [Concomitant]
  32. ALDACTONE [Concomitant]
  33. AREDIA [Suspect]
     Indication: METASTASES TO BONE
     Dosage: 90 MG, QW4
     Route: 042
     Dates: start: 20010401, end: 20011101
  34. FEMARA [Concomitant]
     Dosage: 2.5 MG, UNK
     Dates: start: 20000101, end: 20060401
  35. GEMZAR [Concomitant]
  36. ZOMETA [Suspect]
     Indication: METASTASES TO BONE
     Dosage: 4 MG, QMO
     Route: 042
     Dates: start: 20020423, end: 20050128
  37. PERCOCET [Concomitant]
  38. FLUTICASONE PROPIONATE [Concomitant]
  39. RADIATION [Concomitant]
     Dates: start: 20010101
  40. XELODA [Concomitant]
  41. NEUPOGEN [Concomitant]
  42. LYRICA [Concomitant]

REACTIONS (19)
  - PNEUMONIA [None]
  - RESPIRATORY FAILURE [None]
  - PLEURAL EFFUSION [None]
  - OSTEONECROSIS OF JAW [None]
  - PAIN [None]
  - ANXIETY [None]
  - SERUM FERRITIN INCREASED [None]
  - OSTEOMYELITIS [None]
  - TOOTH FRACTURE [None]
  - INTERCOSTAL NEURALGIA [None]
  - BREAST CANCER RECURRENT [None]
  - LEFT VENTRICULAR HYPERTROPHY [None]
  - FISTULA [None]
  - CARDIOMEGALY [None]
  - ANHEDONIA [None]
  - METASTASES TO LIVER [None]
  - SINUSITIS [None]
  - NEURITIS [None]
  - PATHOLOGICAL FRACTURE [None]
